FAERS Safety Report 23740837 (Version 1)
Quarter: 2024Q2

REPORT INFORMATION
  Report Type: Spontaneous
  Country: IL (occurrence: IL)
  Receive Date: 20240415
  Receipt Date: 20240415
  Transmission Date: 20240715
  Serious: Yes (Other)
  Sender: FDA-Public Use
  Company Number: IL-CELLTRION INC.-2024IL008491

PATIENT

DRUGS (3)
  1. INFLIXIMAB [Suspect]
     Active Substance: INFLIXIMAB
     Indication: Crohn^s disease
     Dosage: 120 MG INJECTION EVERY 2 WEEKS (THERAPY DURATION: 1 INJECTION)
     Route: 058
     Dates: start: 20240331
  2. INFLIXIMAB [Suspect]
     Active Substance: INFLIXIMAB
     Indication: Crohn^s disease
     Dosage: 2 LOADING DOSES (DOSAGE UNKNOWN)
     Route: 042
     Dates: start: 20240130
  3. RIFAMPIN [Concomitant]
     Active Substance: RIFAMPIN
     Indication: Tuberculosis

REACTIONS (5)
  - Migraine [Recovered/Resolved]
  - White blood cell count decreased [Recovered/Resolved]
  - Tuberculosis [Unknown]
  - Nasopharyngitis [Recovered/Resolved]
  - Intentional dose omission [Unknown]
